FAERS Safety Report 4937260-4 (Version None)
Quarter: 2006Q1

REPORT INFORMATION
  Report Type: 
  Country: None (occurrence: None)
  Receive Date: 20060307
  Receipt Date: 20060307
  Transmission Date: 20060701
  Serious: Yes (Hospitalization)
  Sender: FDA-Public Use
  Company Number: None

PATIENT
  Age: 44 Year
  Sex: Male
  Weight: 71.2147 kg

DRUGS (7)
  1. ERBITUX [Suspect]
     Indication: NASOPHARYNGEAL CANCER
     Dosage: 250 MG ONCE/WEEK IV DRIP
     Route: 041
     Dates: start: 20060130, end: 20060227
  2. TAXOL [Concomitant]
  3. CARBOPLATIN [Concomitant]
  4. RADIATION THERAPY PRE-RX  WITH ANZMENT [Concomitant]
  5. PEPCID [Concomitant]
  6. BENADRYL [Concomitant]
  7. DECADRON SRC [Concomitant]

REACTIONS (2)
  - CENTRAL LINE INFECTION [None]
  - RASH [None]
